FAERS Safety Report 5353563-6 (Version None)
Quarter: 2007Q2

REPORT INFORMATION
  Report Type: 
  Country: None (occurrence: None)
  Receive Date: 20070612
  Receipt Date: 20070531
  Transmission Date: 20071010
  Serious: Yes (Hospitalization, Disabling, Other)
  Sender: FDA-Public Use
  Company Number: FR-BAYER-200710295BFR

PATIENT
  Age: 19 Year
  Sex: Male
  Weight: 65 kg

DRUGS (4)
  1. IZILOX [Suspect]
     Indication: ACUTE SINUSITIS
     Route: 048
     Dates: start: 20061208, end: 20061213
  2. CELESTENE [Concomitant]
     Indication: ACUTE SINUSITIS
     Route: 048
     Dates: start: 20061201, end: 20061213
  3. DERINOX [Concomitant]
     Indication: ACUTE SINUSITIS
     Dates: start: 20061201
  4. AUGMENTIN '125' [Concomitant]
     Indication: ACUTE SINUSITIS
     Dates: start: 20061201, end: 20061201

REACTIONS (3)
  - ARTHRALGIA [None]
  - BONE INFARCTION [None]
  - OSTEONECROSIS [None]
